FAERS Safety Report 15662248 (Version 2)
Quarter: 2018Q4

REPORT INFORMATION
  Report Type: Spontaneous
  Country: IN (occurrence: IN)
  Receive Date: 20181127
  Receipt Date: 20181130
  Transmission Date: 20190205
  Serious: Yes (Other)
  Sender: FDA-Public Use
  Company Number: IN-ALLERGAN-1854912US

PATIENT
  Age: 70 Year
  Sex: Male

DRUGS (4)
  1. PREDNISOLONE UNK [Suspect]
     Active Substance: PREDNISOLONE
     Indication: POSTOPERATIVE CARE
     Dosage: UNK. 6 TIMES A DAY
     Route: 047
  2. CARBOXYMETHYLCELLULOSE SODIUM. [Suspect]
     Active Substance: CARBOXYMETHYLCELLULOSE SODIUM
     Indication: POSTOPERATIVE CARE
     Dosage: UNK 6 TIMES A DAY
  3. MOXIFLOXACIN. [Suspect]
     Active Substance: MOXIFLOXACIN
     Indication: POSTOPERATIVE CARE
     Dosage: 6 TIMES A DAY
     Route: 031
  4. VANCOMYCIN [Suspect]
     Active Substance: VANCOMYCIN
     Indication: POSTOPERATIVE CARE
     Dosage: UNK 6 TIMES A DAY

REACTIONS (3)
  - Retinal detachment [Unknown]
  - Mycotic endophthalmitis [Recovered/Resolved]
  - Visual acuity reduced [Unknown]
